FAERS Safety Report 5563679-7 (Version None)
Quarter: 2007Q4

REPORT INFORMATION
  Report Type: 
  Country: None (occurrence: None)
  Receive Date: 20071217
  Receipt Date: 20070723
  Transmission Date: 20080405
  Serious: No
  Sender: FDA-Public Use
  Company Number: US-ASTRAZENECA-2007UW17844

PATIENT
  Age: 65 Year
  Sex: Male

DRUGS (6)
  1. CRESTOR [Suspect]
     Route: 048
     Dates: start: 20070701
  2. LISINOPRIL [Concomitant]
  3. NIACIN [Concomitant]
  4. ASPIRIN [Concomitant]
  5. OXYCONTIN [Concomitant]
  6. LOVASTATIN [Concomitant]

REACTIONS (3)
  - ABDOMINAL PAIN [None]
  - HAEMATOCHEZIA [None]
  - MUCOUS STOOLS [None]
